FAERS Safety Report 10570367 (Version 2)
Quarter: 2015Q1

REPORT INFORMATION
  Report Type: Report from Study
  Country: US (occurrence: US)
  Receive Date: 20141107
  Receipt Date: 20150112
  Transmission Date: 20150720
  Serious: Yes (Other)
  Sender: FDA-Public Use
  Company Number: US-JNJFOC-20141101494

PATIENT
  Sex: Male

DRUGS (9)
  1. IRON SUPPLEMENT [Concomitant]
     Active Substance: IRON
     Route: 065
  2. PROSCAR [Concomitant]
     Active Substance: FINASTERIDE
     Route: 065
  3. FINASTERIDE. [Concomitant]
     Active Substance: FINASTERIDE
     Route: 065
  4. FERREX 150 [Concomitant]
     Route: 065
  5. METHOTREXATE [Concomitant]
     Active Substance: METHOTREXATE
     Route: 065
  6. REMICADE [Suspect]
     Active Substance: INFLIXIMAB
     Indication: CROHN^S DISEASE
     Route: 042
  7. CITRACAL [Concomitant]
     Active Substance: CALCIUM CITRATE
     Route: 065
  8. VITAMIN D [Concomitant]
     Active Substance: CHOLECALCIFEROL
     Route: 065
  9. CENTRUM (MINERALS NOS, VITAMINS NOS) [Concomitant]
     Route: 065

REACTIONS (6)
  - Basal cell carcinoma [Unknown]
  - Myalgia [Not Recovered/Not Resolved]
  - Arthralgia [Not Recovered/Not Resolved]
  - Dizziness [Recovered/Resolved]
  - Rhinorrhoea [Unknown]
  - Cataract [Unknown]
